FAERS Safety Report 5817297-3 (Version None)
Quarter: 2008Q3

REPORT INFORMATION
  Report Type: 
  Country: None (occurrence: None)
  Receive Date: 20080722
  Receipt Date: 20080708
  Transmission Date: 20090109
  Serious: Yes (Other)
  Sender: FDA-Public Use
  Company Number: B0529661B

PATIENT
  Sex: Male

DRUGS (9)
  1. LABETALOL HCL [Suspect]
     Indication: HYPERTENSION
  2. ROPINIROLE [Suspect]
  3. METOCLOPRAMIDE [Suspect]
  4. RABEPRAZOLE SODIUM [Suspect]
  5. CINACALCET HYDROCHLORIDE [Suspect]
  6. EPOGEN [Suspect]
  7. MULTI-VITAMINS [Suspect]
  8. HEPARIN [Suspect]
  9. VANCOMYCIN HCL [Suspect]

REACTIONS (3)
  - DRUG EXPOSURE DURING PREGNANCY [None]
  - FOETAL HEART RATE DECREASED [None]
  - PREMATURE BABY [None]
